FAERS Safety Report 4348474-9 (Version None)
Quarter: 2004Q2

REPORT INFORMATION
  Report Type: 
  Country: None (occurrence: None)
  Receive Date: 20040427
  Receipt Date: 20040114
  Transmission Date: 20050107
  Serious: No
  Sender: FDA-Public Use
  Company Number: US-GLAXOSMITHKLINE-A0493268A

PATIENT
  Age: 83 Year
  Sex: Male

DRUGS (1)
  1. VENTOLIN [Suspect]
     Indication: EMPHYSEMA
     Dosage: 120MCG TWICE PER DAY
     Route: 055
     Dates: start: 20040101, end: 20040101

REACTIONS (1)
  - DRUG INEFFECTIVE [None]
